FAERS Safety Report 5922251-7 (Version None)
Quarter: 2008Q4

REPORT INFORMATION
  Report Type: 
  Country: None (occurrence: None)
  Receive Date: 20081017
  Receipt Date: 20081010
  Transmission Date: 20090506
  Serious: Yes (Other)
  Sender: FDA-Public Use
  Company Number: ES-AVENTIS-200819566GDDC

PATIENT
  Age: 57 Year
  Sex: Male
  Weight: 111.5 kg

DRUGS (8)
  1. GLIMEPIRIDE [Suspect]
     Route: 048
     Dates: start: 20060301, end: 20071214
  2. GLIMEPIRIDE [Suspect]
  3. METFORMIN HCL [Concomitant]
     Dates: start: 19960101
  4. PRITOR PLUS [Concomitant]
  5. CARDURA [Concomitant]
     Dates: start: 19930101
  6. ZARATOR                            /01326101/ [Concomitant]
     Dates: start: 19930101
  7. ASPIRIN [Concomitant]
     Dates: start: 19960101
  8. NORVASC [Concomitant]
     Dates: start: 20030101

REACTIONS (2)
  - PROSTATE CANCER [None]
  - PROSTATIC SPECIFIC ANTIGEN INCREASED [None]
